FAERS Safety Report 15046343 (Version 1)
Quarter: 2018Q2

REPORT INFORMATION
  Report Type: Spontaneous
  Country: US (occurrence: US)
  Receive Date: 20180601
  Receipt Date: 20180601
  Transmission Date: 20180711
  Serious: No
  Sender: FDA-Public Use
  Company Number: None

PATIENT
  Age: 52 Year
  Sex: Female

DRUGS (1)
  1. MYCOPHENOLATE 500MG ACCORD [Suspect]
     Active Substance: MYCOPHENOLATE MOFETIL
     Indication: TRANSPLANT
     Dosage: 1000MG IN AM AN 500MG IN PM TWICE A DAY ORAL
     Route: 048
     Dates: start: 20180317

REACTIONS (8)
  - Trismus [None]
  - Headache [None]
  - Paraesthesia [None]
  - Hypoaesthesia [None]
  - Nausea [None]
  - Abdominal pain upper [None]
  - Joint lock [None]
  - Peripheral swelling [None]

NARRATIVE: CASE EVENT DATE: 20180201
